FAERS Safety Report 21621442 (Version 1)
Quarter: 2022Q4

REPORT INFORMATION
  Report Type: Spontaneous
  Country: IN (occurrence: IN)
  Receive Date: 20221121
  Receipt Date: 20221121
  Transmission Date: 20230113
  Serious: Yes (Death, Other)
  Sender: FDA-Public Use
  Company Number: IN-PFIZER INC-PV202200105031

PATIENT
  Age: 71 Year
  Sex: Female

DRUGS (4)
  1. DOXORUBICIN HYDROCHLORIDE [Suspect]
     Active Substance: DOXORUBICIN HYDROCHLORIDE
     Indication: Neoplasm of appendix
     Dosage: UNK, CYCLIC
     Route: 033
  2. DOXORUBICIN HYDROCHLORIDE [Suspect]
     Active Substance: DOXORUBICIN HYDROCHLORIDE
     Indication: Chemotherapy
  3. MITOMYCIN C [Suspect]
     Active Substance: MITOMYCIN
     Indication: Neoplasm of appendix
     Dosage: UNK UNK, CYCLIC
     Route: 033
  4. MITOMYCIN C [Suspect]
     Active Substance: MITOMYCIN
     Indication: Chemotherapy

REACTIONS (4)
  - Hypotension [Fatal]
  - Acute kidney injury [Fatal]
  - Off label use [Unknown]
  - Off label use [Unknown]
